FAERS Safety Report 7984425-3 (Version None)
Quarter: 2011Q4

REPORT INFORMATION
  Report Type: 
  Country: None (occurrence: None)
  Receive Date: 20111216
  Receipt Date: 20111205
  Transmission Date: 20120403
  Serious: Yes (Hospitalization)
  Sender: FDA-Public Use
  Company Number: ES-ELI_LILLY_AND_COMPANY-ES201112001526

PATIENT
  Sex: Female
  Weight: 86 kg

DRUGS (10)
  1. FORTEO [Suspect]
     Indication: OSTEOPOROSIS
     Dosage: 20 UG, QD
     Route: 058
     Dates: start: 20100506
  2. ATORVASTATINA [Concomitant]
     Indication: HYPERCHOLESTEROLAEMIA
     Dosage: 1 DF, QD
     Route: 048
  3. PARACETAMOL [Concomitant]
     Indication: ANALGESIC THERAPY
     Dosage: 1 DF, BID
     Route: 048
  4. OMEPRAZOLE [Concomitant]
     Indication: GASTRITIS PROPHYLAXIS
     Dosage: 1 DF, BID
     Route: 048
  5. REDOXON [Concomitant]
     Indication: VITAMIN SUPPLEMENTATION
     Dosage: 1 DF, QD
     Route: 048
  6. TORSEMIDE [Concomitant]
     Indication: HYPERTENSION
     Dosage: 1 DF, BID
     Route: 048
  7. ALDACTONE [Concomitant]
     Indication: HYPERTENSION
     Dosage: 1 DF, BID
     Route: 048
  8. MASTICAL [Concomitant]
     Indication: OSTEOPOROSIS
     Dosage: 1 DF, QD
  9. ZAMENE [Concomitant]
     Indication: SYSTEMIC LUPUS ERYTHEMATOSUS
     Dosage: 1 DF, QD
     Route: 048
  10. DOLQUINE [Concomitant]
     Indication: SYSTEMIC LUPUS ERYTHEMATOSUS
     Dosage: 1 DF, QD
     Route: 048

REACTIONS (1)
  - SPINAL DISORDER [None]
